FAERS Safety Report 8155564-1 (Version None)
Quarter: 2012Q1

REPORT INFORMATION
  Report Type: 
  Country: None (occurrence: None)
  Receive Date: 20120215
  Receipt Date: 20120131
  Transmission Date: 20120608
  Serious: Yes (Other)
  Sender: FDA-Public Use
  Company Number: JPI-P-019272

PATIENT
  Age: 54 Year
  Sex: Female

DRUGS (9)
  1. XYREM [Suspect]
     Indication: CATAPLEXY
     Dosage: 4.5 GM (2.25 GM, 2 IN 1 D), ORAL ; 6 GM (3GM, 2 IN 1 D), ORAL ; 7.5 GM (3.75 GM, 2 IN 1 D), ORAL ; 6
     Route: 048
     Dates: start: 20091013, end: 20091207
  2. XYREM [Suspect]
     Indication: CATAPLEXY
     Dosage: 4.5 GM (2.25 GM, 2 IN 1 D), ORAL ; 6 GM (3GM, 2 IN 1 D), ORAL ; 7.5 GM (3.75 GM, 2 IN 1 D), ORAL ; 6
     Route: 048
     Dates: start: 20110117, end: 20110318
  3. XYREM [Suspect]
     Indication: CATAPLEXY
     Dosage: 4.5 GM (2.25 GM, 2 IN 1 D), ORAL ; 6 GM (3GM, 2 IN 1 D), ORAL ; 7.5 GM (3.75 GM, 2 IN 1 D), ORAL ; 6
     Route: 048
     Dates: start: 20110319, end: 20110809
  4. XYREM [Suspect]
     Indication: CATAPLEXY
     Dosage: 4.5 GM (2.25 GM, 2 IN 1 D), ORAL ; 6 GM (3GM, 2 IN 1 D), ORAL ; 7.5 GM (3.75 GM, 2 IN 1 D), ORAL ; 6
     Route: 048
     Dates: start: 20120101
  5. XYREM [Suspect]
     Indication: CATAPLEXY
     Dosage: 4.5 GM (2.25 GM, 2 IN 1 D), ORAL ; 6 GM (3GM, 2 IN 1 D), ORAL ; 7.5 GM (3.75 GM, 2 IN 1 D), ORAL ; 6
     Route: 048
     Dates: start: 20100121, end: 20100726
  6. XYREM [Suspect]
     Indication: CATAPLEXY
     Dosage: 4.5 GM (2.25 GM, 2 IN 1 D), ORAL ; 6 GM (3GM, 2 IN 1 D), ORAL ; 7.5 GM (3.75 GM, 2 IN 1 D), ORAL ; 6
     Route: 048
     Dates: start: 20090925, end: 20091012
  7. XYREM [Suspect]
     Indication: CATAPLEXY
     Dosage: 4.5 GM (2.25 GM, 2 IN 1 D), ORAL ; 6 GM (3GM, 2 IN 1 D), ORAL ; 7.5 GM (3.75 GM, 2 IN 1 D), ORAL ; 6
     Route: 048
     Dates: start: 20101206, end: 20110116
  8. XYREM [Suspect]
     Indication: CATAPLEXY
     Dosage: 4.5 GM (2.25 GM, 2 IN 1 D), ORAL ; 6 GM (3GM, 2 IN 1 D), ORAL ; 7.5 GM (3.75 GM, 2 IN 1 D), ORAL ; 6
     Route: 048
     Dates: start: 20100727, end: 20101205
  9. XYREM [Suspect]
     Indication: CATAPLEXY
     Dosage: 4.5 GM (2.25 GM, 2 IN 1 D), ORAL ; 6 GM (3GM, 2 IN 1 D), ORAL ; 7.5 GM (3.75 GM, 2 IN 1 D), ORAL ; 6
     Route: 048
     Dates: start: 20110810, end: 20111101

REACTIONS (8)
  - SLEEP DISORDER [None]
  - DYSPNOEA [None]
  - LARYNGITIS [None]
  - ARRHYTHMIA [None]
  - CHILLS [None]
  - NASAL DISORDER [None]
  - DYSPNOEA EXERTIONAL [None]
  - MALAISE [None]
